FAERS Safety Report 6898843-8 (Version None)
Quarter: 2010Q3

REPORT INFORMATION
  Report Type: 
  Country: None (occurrence: None)
  Receive Date: 20100802
  Receipt Date: 20071224
  Transmission Date: 20110219
  Serious: Yes (Other)
  Sender: FDA-Public Use
  Company Number: US-PFIZER INC-2007108101

PATIENT
  Sex: Male
  Weight: 84.09 kg

DRUGS (4)
  1. LYRICA [Suspect]
     Dosage: TWICE DAILY
     Dates: start: 20071001
  2. VICODIN [Concomitant]
  3. METHADONE HCL [Concomitant]
  4. METHOCARBAMOL [Concomitant]

REACTIONS (2)
  - VISION BLURRED [None]
  - VISUAL ACUITY REDUCED [None]
